FAERS Safety Report 21849947 (Version 2)
Quarter: 2025Q3

REPORT INFORMATION
  Report Type: Spontaneous
  Country: US (occurrence: US)
  Receive Date: 20230111
  Receipt Date: 20250916
  Transmission Date: 20251021
  Serious: Yes (Hospitalization, Other)
  Sender: GLENMARK
  Company Number: US-MLMSERVICE-20221226-4002781-1

PATIENT
  Age: 64 Year
  Sex: Male

DRUGS (5)
  1. TACROLIMUS [Suspect]
     Active Substance: TACROLIMUS
     Indication: Immunosuppressant drug therapy
     Dosage: 7.5 MILLIGRAM, EVERY 12 HOURS
     Route: 065
  2. TACROLIMUS [Suspect]
     Active Substance: TACROLIMUS
     Dosage: 6.5 MILLIGRAM, QD, 3 MG DURING THE DAY AND 3.5 MG AT NIGH
     Route: 065
  3. MYCOPHENOLATE MOFETIL [Suspect]
     Active Substance: MYCOPHENOLATE MOFETIL
     Indication: Immunosuppressant drug therapy
     Route: 065
  4. MYCOPHENOLATE MOFETIL [Suspect]
     Active Substance: MYCOPHENOLATE MOFETIL
     Route: 065
  5. MYCOPHENOLATE MOFETIL [Suspect]
     Active Substance: MYCOPHENOLATE MOFETIL
     Dosage: 250 MILLIGRAM, BID
     Route: 065

REACTIONS (8)
  - Sinus tachycardia [Unknown]
  - Gradenigo^s syndrome [Recovered/Resolved]
  - Staphylococcal infection [Recovered/Resolved]
  - Meningoencephalitis viral [Recovered/Resolved]
  - Varicella zoster virus infection [Recovered/Resolved]
  - Otitis externa [Recovered/Resolved]
  - Herpes zoster oticus [Recovering/Resolving]
  - Herpes zoster meningoencephalitis [Recovered/Resolved]
